FAERS Safety Report 24378279 (Version 1)
Quarter: 2024Q3

REPORT INFORMATION
  Report Type: Report from Study
  Country: DE (occurrence: DE)
  Receive Date: 20240930
  Receipt Date: 20240930
  Transmission Date: 20241016
  Serious: Yes (Hospitalization)
  Sender: JOHNSON AND JOHNSON
  Company Number: DE-JNJFOC-20240964860

PATIENT
  Sex: Female
  Weight: 95 kg

DRUGS (6)
  1. TREMFYA [Suspect]
     Active Substance: GUSELKUMAB
     Indication: Psoriasis
     Route: 065
     Dates: start: 20201125
  2. TREMFYA [Suspect]
     Active Substance: GUSELKUMAB
     Indication: Psoriatic arthropathy
  3. TREMFYA [Suspect]
     Active Substance: GUSELKUMAB
  4. CEFUROXIME [Concomitant]
     Active Substance: CEFUROXIME
     Indication: Drug hypersensitivity
     Dates: start: 20220114, end: 20220219
  5. METRONIDAZOLE [Concomitant]
     Active Substance: METRONIDAZOLE
     Indication: Drug hypersensitivity
     Dates: start: 20220114, end: 20220119
  6. MESALAMINE [Concomitant]
     Active Substance: MESALAMINE
     Dosage: FOR 4 WEEKS
     Route: 048

REACTIONS (1)
  - Colitis ischaemic [Recovered/Resolved]

NARRATIVE: CASE EVENT DATE: 20220214
